FAERS Safety Report 8392712-2 (Version None)
Quarter: 2012Q2

REPORT INFORMATION
  Report Type: 
  Country: None (occurrence: None)
  Receive Date: 20120529
  Receipt Date: 20120521
  Transmission Date: 20120825
  Serious: Yes (Other)
  Sender: FDA-Public Use
  Company Number: US-ELI_LILLY_AND_COMPANY-US201205008152

PATIENT
  Sex: Female

DRUGS (2)
  1. HUMALOG MIX 75/25 [Suspect]
     Indication: DIABETES MELLITUS
     Dosage: 70 U, QD
     Dates: start: 19970101
  2. HUMALOG MIX 75/25 [Suspect]
     Dosage: UNK, PRN

REACTIONS (7)
  - INCORRECT DOSE ADMINISTERED BY DEVICE [None]
  - HAEMORRHAGE [None]
  - TRANSIENT ISCHAEMIC ATTACK [None]
  - EYE OPERATION [None]
  - VISUAL ACUITY REDUCED [None]
  - PRODUCT QUALITY ISSUE [None]
  - EYE LASER SURGERY [None]
